FAERS Safety Report 8035603-9 (Version None)
Quarter: 2012Q1

REPORT INFORMATION
  Report Type: 
  Country: None (occurrence: None)
  Receive Date: 20120110
  Receipt Date: 20120110
  Transmission Date: 20120608
  Serious: Yes (Other)
  Sender: FDA-Public Use
  Company Number: None

PATIENT
  Sex: Male
  Weight: 74.5 kg

DRUGS (1)
  1. SUBOXONE [Suspect]
     Indication: DRUG DEPENDENCE
     Dosage: 2 FILMS = 16-4MG DAILY SUBLINGUAL 059
     Route: 060
     Dates: start: 20110914

REACTIONS (5)
  - DRUG WITHDRAWAL SYNDROME [None]
  - IRRITABILITY [None]
  - ASTHENIA [None]
  - ANXIETY [None]
  - BACK PAIN [None]
